FAERS Safety Report 22077520 (Version 1)
Quarter: 2023Q1

REPORT INFORMATION
  Report Type: Report from Study
  Country: US (occurrence: US)
  Receive Date: 20230309
  Receipt Date: 20230309
  Transmission Date: 20230418
  Serious: Yes (Hospitalization, Other)
  Sender: FDA-Public Use
  Company Number: US-ABBVIE-4332258

PATIENT
  Sex: Male
  Weight: 99.79 kg

DRUGS (1)
  1. SKYRIZI [Suspect]
     Active Substance: RISANKIZUMAB-RZAA
     Indication: Psoriasis
     Dosage: FORM STRENGTH: 150?FORM STRENGTH UNITS: MILLIGRAM
     Route: 058
     Dates: start: 20210303

REACTIONS (3)
  - Pulmonary oedema [Unknown]
  - Lower respiratory tract infection [Unknown]
  - Arthralgia [Unknown]
